FAERS Safety Report 4311864-4 (Version None)
Quarter: 2004Q1

REPORT INFORMATION
  Report Type: 
  Country: None (occurrence: None)
  Receive Date: 20040302
  Receipt Date: 20040106
  Transmission Date: 20041129
  Serious: No
  Sender: FDA-Public Use
  Company Number: 200410197BWH

PATIENT
  Age: 74 Year
  Sex: Male

DRUGS (6)
  1. LEVITRA [Suspect]
     Dosage: 10 MG, TOTAL DAILY
     Route: 048
     Dates: start: 20031201
  2. LEVITRA [Suspect]
     Dosage: 10 MG, TOTAL DAILY
     Route: 048
     Dates: start: 20031201
  3. LEVITRA [Suspect]
     Dosage: 10 MG, TOTAL DAILY
     Route: 048
     Dates: start: 20040105
  4. SYNTHROID [Concomitant]
  5. DETROL [Concomitant]
  6. ZOCOR [Concomitant]

REACTIONS (1)
  - HEADACHE [None]
